FAERS Safety Report 4781086-1 (Version None)
Quarter: 2005Q3

REPORT INFORMATION
  Report Type: 
  Country: None (occurrence: None)
  Receive Date: 20050926
  Receipt Date: 20050912
  Transmission Date: 20060218
  Serious: Yes (Hospitalization)
  Sender: FDA-Public Use
  Company Number: 8011540

PATIENT
  Age: 51 Year
  Sex: Female
  Weight: 70 kg

DRUGS (7)
  1. KEPPRA [Suspect]
     Indication: CONVULSION
     Dosage: 2 G/D PO
     Route: 048
     Dates: start: 20050809, end: 20050822
  2. FOLIC ACID [Concomitant]
  3. PHENYTOIN [Concomitant]
  4. ASPIRIN [Concomitant]
  5. LUMINAL [Concomitant]
  6. EUTHYROX [Concomitant]
  7. FRAXIPARIN [Concomitant]

REACTIONS (1)
  - LEUKOPENIA [None]
